FAERS Safety Report 9154811 (Version 3)
Quarter: 2013Q2

REPORT INFORMATION
  Report Type: Spontaneous
  Country: SE (occurrence: SE)
  Receive Date: 20130311
  Receipt Date: 20130612
  Transmission Date: 20140414
  Serious: Yes (Other)
  Sender: FDA-Public Use
  Company Number: SE-ROCHE-1199949

PATIENT
  Age: 19 Year
  Sex: Female

DRUGS (3)
  1. VALCYTE [Suspect]
     Indication: PRODUCT USED FOR UNKNOWN INDICATION
     Route: 065
     Dates: start: 20130227, end: 20130303
  2. CELLCEPT [Concomitant]
  3. PROGRAF [Concomitant]

REACTIONS (4)
  - Polyneuropathy [Recovered/Resolved]
  - Hyperaesthesia [Recovered/Resolved]
  - Allodynia [Recovered/Resolved]
  - Drug level increased [Recovered/Resolved]
